FAERS Safety Report 21189111 (Version 4)
Quarter: 2022Q4

REPORT INFORMATION
  Report Type: Spontaneous
  Country: US (occurrence: US)
  Receive Date: 20220809
  Receipt Date: 20221027
  Transmission Date: 20230113
  Serious: No
  Sender: FDA-Public Use
  Company Number: US-BRISTOL-MYERS SQUIBB COMPANY-2022-086570

PATIENT
  Age: 52 Year
  Sex: Female
  Weight: 48.08 kg

DRUGS (1)
  1. REBLOZYL [Suspect]
     Active Substance: LUSPATERCEPT-AAMT
     Indication: Thalassaemia beta
     Dosage: 50MG EVERY 21 DAYS, IV INFUSION
     Route: 042
     Dates: start: 20200429

REACTIONS (1)
  - Adverse event [Unknown]
